FAERS Safety Report 22531779 (Version 1)
Quarter: 2023Q2

REPORT INFORMATION
  Report Type: Spontaneous
  Country: CN (occurrence: CN)
  Receive Date: 20230607
  Receipt Date: 20230607
  Transmission Date: 20230722
  Serious: Yes (Hospitalization, Disabling, Other)
  Sender: FDA-Public Use
  Company Number: CN-SA-SAC20230605001256

PATIENT
  Age: 35 Year
  Sex: Female
  Weight: 67 kg

DRUGS (1)
  1. ENOXAPARIN SODIUM [Suspect]
     Active Substance: ENOXAPARIN SODIUM
     Indication: Eclampsia
     Dosage: 6000 U, QD
     Route: 058
     Dates: start: 20230518, end: 20230526

REACTIONS (4)
  - Heparin-induced thrombocytopenia [Recovering/Resolving]
  - Premature separation of placenta [Recovering/Resolving]
  - Foetal heart rate abnormal [Recovering/Resolving]
  - Exposure during pregnancy [Unknown]

NARRATIVE: CASE EVENT DATE: 20230520
